FAERS Safety Report 12310168 (Version 1)
Quarter: 2016Q2

REPORT INFORMATION
  Report Type: Spontaneous
  Country: US (occurrence: US)
  Receive Date: 20160427
  Receipt Date: 20160427
  Transmission Date: 20160815
  Serious: Yes (Disabling, Other)
  Sender: FDA-Public Use
  Company Number: US-TEVA-654296USA

PATIENT
  Sex: Female
  Weight: 74 kg

DRUGS (6)
  1. CELEBREX [Suspect]
     Active Substance: CELECOXIB
     Indication: RHEUMATOID ARTHRITIS
     Dosage: 400 MILLIGRAM DAILY;
     Route: 065
     Dates: start: 201511
  2. FLEXERIL [Suspect]
     Active Substance: CYCLOBENZAPRINE HYDROCHLORIDE
     Route: 065
  3. VALIUM [Concomitant]
     Active Substance: DIAZEPAM
     Dosage: 10 MG
     Route: 048
  4. MELOXICAM. [Suspect]
     Active Substance: MELOXICAM
     Indication: RHEUMATOID ARTHRITIS
     Dosage: 15 MILLIGRAM DAILY;
     Route: 048
  5. HYDROCODONE [Concomitant]
     Active Substance: HYDROCODONE
     Indication: PAIN
     Dosage: 10/325, FOUR TIMES A DAY
  6. SKELAXIN [Suspect]
     Active Substance: METAXALONE
     Route: 065

REACTIONS (10)
  - Activities of daily living impaired [Unknown]
  - Drug ineffective [Unknown]
  - Swelling [Unknown]
  - Adverse event [Unknown]
  - Flatulence [Unknown]
  - Abdominal distension [Unknown]
  - Malaise [Unknown]
  - Peripheral swelling [Unknown]
  - Abasia [Unknown]
  - Abdominal discomfort [Unknown]
